FAERS Safety Report 8460539-9 (Version None)
Quarter: 2012Q2

REPORT INFORMATION
  Report Type: 
  Country: None (occurrence: None)
  Receive Date: 20120622
  Receipt Date: 20120613
  Transmission Date: 20120825
  Serious: Yes (Hospitalization, Disabling)
  Sender: FDA-Public Use
  Company Number: DE-ASTRAZENECA-2012SE39961

PATIENT
  Age: 37 Year
  Sex: Male

DRUGS (4)
  1. LORAZEPAM [Concomitant]
     Route: 048
     Dates: start: 20120120, end: 20120122
  2. VALPROATE SODIUM [Suspect]
     Route: 048
  3. LORAZEPAM [Concomitant]
     Route: 048
     Dates: start: 20120123
  4. SEROQUEL [Suspect]
     Route: 048

REACTIONS (1)
  - THROMBOSIS [None]
